FAERS Safety Report 8375814-6 (Version None)
Quarter: 2012Q1

REPORT INFORMATION
  Report Type: 
  Country: None (occurrence: None)
  Receive Date: 20120323
  Receipt Date: 20110220
  Transmission Date: 20120608
  Serious: Yes (Hospitalization)
  Sender: FDA-Public Use
  Company Number: 163-21880-11020093

PATIENT
  Age: 63 Year
  Sex: Male
  Weight: 82.1 kg

DRUGS (10)
  1. POTASSIUM CHLORIDE [Concomitant]
  2. DILAUDID [Concomitant]
  3. REVLIMID [Suspect]
     Indication: MULTIPLE MYELOMA
     Dosage: 15 MG, DAILY X 21 DAYS, PO
     Route: 048
     Dates: start: 20101101
  4. LEVOTHYROXINE SODIUM [Concomitant]
  5. PANTOPRAZOLE [Concomitant]
  6. ASPIRIN [Concomitant]
  7. PREDNISONE TAB [Concomitant]
  8. FLUDROCORTISONE ACETATE [Concomitant]
  9. LACTULOSE [Concomitant]
  10. MIRALAX [Concomitant]

REACTIONS (3)
  - OEDEMA PERIPHERAL [None]
  - DYSGEUSIA [None]
  - DRY MOUTH [None]
